FAERS Safety Report 8123043-3 (Version None)
Quarter: 2012Q1

REPORT INFORMATION
  Report Type: 
  Country: None (occurrence: None)
  Receive Date: 20120208
  Receipt Date: 20120127
  Transmission Date: 20120608
  Serious: Yes (Other)
  Sender: FDA-Public Use
  Company Number: CHPA2012US002280

PATIENT
  Age: 64 Year
  Sex: Male

DRUGS (2)
  1. EXCEDRIN TENSION HEADACHE CAPLETS [Suspect]
     Indication: MIGRAINE
     Dosage: 1-2 DF, PRN
     Route: 048
  2. TOPIRAMATE [Concomitant]
     Indication: MIGRAINE
     Dosage: UNK

REACTIONS (5)
  - VOMITING [None]
  - MIGRAINE [None]
  - INCOHERENT [None]
  - FEELING ABNORMAL [None]
  - UNDERDOSE [None]
